FAERS Safety Report 18559712 (Version 1)
Quarter: 2020Q4

REPORT INFORMATION
  Report Type: Spontaneous
  Country: US (occurrence: US)
  Receive Date: 20201129
  Receipt Date: 20201129
  Transmission Date: 20210114
  Serious: No
  Sender: FDA-Public Use
  Company Number: None

PATIENT
  Age: 55 Year
  Sex: Male
  Weight: 81 kg

DRUGS (1)
  1. FLUTICASONE, SALMETEROL INHALER [Suspect]
     Active Substance: FLUTICASONE PROPIONATE\SALMETEROL XINAFOATE
     Indication: ASTHMA
     Dosage: ?          QUANTITY:1 PUFF(S);?
     Route: 055

REACTIONS (2)
  - Product contamination physical [None]
  - Cough [None]

NARRATIVE: CASE EVENT DATE: 20201129
